FAERS Safety Report 23977636 (Version 5)
Quarter: 2024Q3

REPORT INFORMATION
  Report Type: Spontaneous
  Country: JP (occurrence: None)
  Receive Date: 20240614
  Receipt Date: 20240704
  Transmission Date: 20241016
  Serious: Yes (Hospitalization)
  Sender: ASTRAZENECA
  Company Number: 2024A127377

PATIENT
  Sex: Male

DRUGS (2)
  1. FASENRA [Suspect]
     Active Substance: BENRALIZUMAB
     Indication: Asthma
     Dosage: DOSE UNKNOWN
     Route: 058
     Dates: start: 20240401, end: 20240430
  2. FLUTICASONE FUROATE\VILANTEROL TRIFENATATE [Concomitant]
     Active Substance: FLUTICASONE FUROATE\VILANTEROL TRIFENATATE
     Dosage: DOSE UNKNOWN

REACTIONS (2)
  - Eosinophilic granulomatosis with polyangiitis [Recovering/Resolving]
  - Pulmonary alveolar haemorrhage [Not Recovered/Not Resolved]

NARRATIVE: CASE EVENT DATE: 20240529
